FAERS Safety Report 5841876-0 (Version None)
Quarter: 2008Q3

REPORT INFORMATION
  Report Type: 
  Country: None (occurrence: None)
  Receive Date: 20080811
  Receipt Date: 20080811
  Transmission Date: 20090109
  Serious: Yes (Life-Threatening, Hospitalization)
  Sender: FDA-Public Use
  Company Number: None

PATIENT
  Age: 37 Year
  Sex: Female
  Weight: 85.2762 kg

DRUGS (1)
  1. YAZ [Suspect]
     Indication: ENDOMETRIOSIS
     Dosage: 3MG / 0.02 MG 1 PILL EVERY DAY
     Dates: start: 20070821, end: 20080725

REACTIONS (7)
  - BREAST MASS [None]
  - CHEST PAIN [None]
  - DYSPNOEA [None]
  - HYPERHIDROSIS [None]
  - LOSS OF CONSCIOUSNESS [None]
  - LUNG DISORDER [None]
  - THROMBOSIS [None]
